FAERS Safety Report 5382913-X (Version None)
Quarter: 2007Q3

REPORT INFORMATION
  Report Type: 
  Country: None (occurrence: None)
  Receive Date: 20070705
  Receipt Date: 20070228
  Transmission Date: 20080115
  Serious: Yes (Hospitalization)
  Sender: FDA-Public Use
  Company Number: 2007SP000710

PATIENT
  Age: 74 Year
  Sex: Female
  Weight: 73.4827 kg

DRUGS (12)
  1. XOPENEX HFA [Suspect]
     Indication: CHRONIC OBSTRUCTIVE PULMONARY DISEASE
     Dosage: ; PRN; INHALATION
     Route: 055
  2. CALCIUM CHLORIDE [Concomitant]
  3. ASPIRIN [Concomitant]
  4. PRILOSEC [Concomitant]
  5. TYLENOL [Concomitant]
  6. FORMOTEROL FUMARATE [Concomitant]
  7. ALBUTEROL [Concomitant]
  8. ATACAND [Concomitant]
  9. HYDROCHLOROTHIAZIDE [Concomitant]
  10. PNEUMOVAX 23 [Concomitant]
  11. INFLUENZA VACCINE [Concomitant]
  12. ATROVENT [Concomitant]

REACTIONS (16)
  - CHRONIC OBSTRUCTIVE PULMONARY DISEASE [None]
  - EOSINOPHIL PERCENTAGE INCREASED [None]
  - HAEMATOCRIT DECREASED [None]
  - HAEMOGLOBIN DECREASED [None]
  - HILAR LYMPHADENOPATHY [None]
  - LUNG NEOPLASM [None]
  - LYMPHADENOPATHY [None]
  - LYMPHADENOPATHY MEDIASTINAL [None]
  - LYMPHOCYTE PERCENTAGE DECREASED [None]
  - MASS [None]
  - MUSCLE SPASMS [None]
  - NEOPLASM [None]
  - PNEUMONIA [None]
  - PULMONARY GRANULOMA [None]
  - RED BLOOD CELL COUNT DECREASED [None]
  - SCAR [None]
